FAERS Safety Report 23432591 (Version 4)
Quarter: 2024Q1

REPORT INFORMATION
  Report Type: Spontaneous
  Country: US (occurrence: None)
  Receive Date: 20240123
  Receipt Date: 20240311
  Transmission Date: 20240410
  Serious: Yes (Death, Other)
  Sender: FDA-Public Use
  Company Number: US-ROCHE-3494725

PATIENT
  Sex: Male

DRUGS (1)
  1. OCREVUS [Suspect]
     Active Substance: OCRELIZUMAB
     Indication: Tumefactive multiple sclerosis
     Route: 065

REACTIONS (4)
  - Cardiac arrest [Fatal]
  - Paraplegia [Unknown]
  - Off label use [Unknown]
  - Type 2 diabetes mellitus [Unknown]
